FAERS Safety Report 13438618 (Version 1)
Quarter: 2017Q2

REPORT INFORMATION
  Report Type: Report from Study
  Country: US (occurrence: US)
  Receive Date: 20170412
  Receipt Date: 20170412
  Transmission Date: 20170830
  Serious: Yes (Death)
  Sender: FDA-Public Use
  Company Number: US-ACTELION-A-US2017-151127

PATIENT
  Age: 73 Year
  Sex: Female

DRUGS (5)
  1. OPSUMIT [Suspect]
     Active Substance: MACITENTAN
     Indication: PULMONARY ARTERIAL HYPERTENSION
     Dosage: 10 MG, UNK
     Route: 048
  2. SPIRONOLACTONE. [Concomitant]
     Active Substance: SPIRONOLACTONE
  3. SILDENAFIL. [Concomitant]
     Active Substance: SILDENAFIL
  4. BUMETANIDE. [Concomitant]
     Active Substance: BUMETANIDE
  5. POTASSIUM CHLORIDE. [Concomitant]
     Active Substance: POTASSIUM CHLORIDE

REACTIONS (3)
  - Chest pain [Unknown]
  - Death [Fatal]
  - Chest discomfort [Unknown]

NARRATIVE: CASE EVENT DATE: 20170326
